FAERS Safety Report 10718516 (Version 2)
Quarter: 2015Q4

REPORT INFORMATION
  Report Type: Spontaneous
  Country: GR (occurrence: GR)
  Receive Date: 20150119
  Receipt Date: 20151211
  Transmission Date: 20160304
  Serious: No
  Sender: FDA-Public Use
  Company Number: GR-009507513-1501GRC005481

PATIENT
  Sex: Female
  Weight: 90 kg

DRUGS (2)
  1. JANUMET [Suspect]
     Active Substance: METFORMIN HYDROCHLORIDE\SITAGLIPTIN PHOSPHATE
     Indication: TYPE 2 DIABETES MELLITUS
     Dosage: 2 TABLETS, DAILY
     Route: 048
     Dates: start: 201410
  2. EFROZIN [Concomitant]

REACTIONS (1)
  - Glaucoma [Recovered/Resolved]
